FAERS Safety Report 20126805 (Version 1)
Quarter: 2021Q4

REPORT INFORMATION
  Report Type: Report from Study
  Country: IE (occurrence: None)
  Receive Date: 20211129
  Receipt Date: 20211129
  Transmission Date: 20220303
  Serious: Yes (Hospitalization)
  Sender: FDA-Public Use
  Company Number: IE-Merck Healthcare KGaA-9282372

PATIENT
  Age: 28 Year
  Sex: Female

DRUGS (4)
  1. MAVENCLAD [Suspect]
     Active Substance: CLADRIBINE
     Indication: Relapsing-remitting multiple sclerosis
     Dosage: YEAR ONE WEEK ONE THERAPY: ONE DOSAGE FORM ON DAYS 1 TO 5
     Route: 048
     Dates: start: 20191118
  2. MAVENCLAD [Suspect]
     Active Substance: CLADRIBINE
     Dosage: YEAR ONE WEEK FIVE THERAPY: ONE DOSAGE FORM ON DAYS 1 TO 5
     Route: 048
     Dates: start: 20191216
  3. MAVENCLAD [Suspect]
     Active Substance: CLADRIBINE
     Dosage: YEAR TWO WEEK ONE THERAPY: ONE DOSAGE FORM ON DAYS 1 TO 5
     Route: 048
     Dates: start: 20201117
  4. MAVENCLAD [Suspect]
     Active Substance: CLADRIBINE
     Dosage: YEAR TWO WEEK FIVE THERAPY: ONE DOSAGE FORM ON DAYS 1 TO 5
     Route: 048
     Dates: start: 20201215

REACTIONS (2)
  - Post-traumatic stress disorder [Unknown]
  - Multiple sclerosis relapse [Unknown]

NARRATIVE: CASE EVENT DATE: 20211001
